FAERS Safety Report 23648180 (Version 1)
Quarter: 2024Q1

REPORT INFORMATION
  Report Type: Spontaneous
  Country: US (occurrence: US)
  Receive Date: 20240319
  Receipt Date: 20240319
  Transmission Date: 20240410
  Serious: Yes (Hospitalization, Other)
  Sender: FDA-Public Use
  Company Number: US-PFIZER INC-PV202400035705

PATIENT
  Sex: Female

DRUGS (4)
  1. VINCRISTINE SULFATE [Suspect]
     Active Substance: VINCRISTINE SULFATE
     Indication: Rhabdomyosarcoma
     Dosage: 0.025 MG/KG, CYCLIC
  2. DACTINOMYCIN [Suspect]
     Active Substance: DACTINOMYCIN
     Indication: Immunosuppressant drug therapy
     Dosage: 0.025 MG/KG, CYCLIC
  3. DACTINOMYCIN [Suspect]
     Active Substance: DACTINOMYCIN
     Indication: Rhabdomyosarcoma
  4. CYCLOPHOSPHAMIDE [Suspect]
     Active Substance: CYCLOPHOSPHAMIDE
     Indication: Rhabdomyosarcoma
     Dosage: 40 MG/M2, CYCLIC

REACTIONS (1)
  - Nocardiosis [Recovered/Resolved]
